FAERS Safety Report 21713249 (Version 1)
Quarter: 2022Q4

REPORT INFORMATION
  Report Type: Spontaneous
  Country: FR (occurrence: FR)
  Receive Date: 20221212
  Receipt Date: 20221212
  Transmission Date: 20230112
  Serious: Yes (Hospitalization)
  Sender: FDA-Public Use
  Company Number: None

PATIENT
  Age: 73 Year
  Sex: Female
  Weight: 72 kg

DRUGS (4)
  1. GABAPENTIN [Suspect]
     Active Substance: GABAPENTIN
     Indication: Neuralgia
     Dosage: 30 MG (UNE FOIS PAR JOUR J1 PUIS 2/J J2 PUIS 3/J J3)
     Route: 048
     Dates: start: 20220519, end: 20220523
  2. ACLASTA [Concomitant]
     Active Substance: ZOLEDRONIC ACID
     Indication: Hypercalcaemia
     Dosage: 1DOSAGE FORM (1 INJECTION)
     Route: 042
     Dates: start: 20220521, end: 20220521
  3. MORPHINE SULFATE [Concomitant]
     Active Substance: MORPHINE SULFATE
     Indication: Sciatica
     Dosage: 4 DOSAGE FORM (2 CP MATIN ET SOIR) (FORMULATION: PROLONGED-RELEASE COATED TABLET)
     Route: 048
     Dates: start: 20220518, end: 20220522
  4. MORPHINE SULFATE [Concomitant]
     Active Substance: MORPHINE SULFATE
     Indication: Sciatica
     Dosage: UNK (1 COMPRIME LE 17.05 AU SOIR PUIS 2 CP/6H)
     Route: 048
     Dates: start: 20220517, end: 20220522

REACTIONS (1)
  - Metabolic acidosis [Recovering/Resolving]

NARRATIVE: CASE EVENT DATE: 20220521
